FAERS Safety Report 5163534-0 (Version None)
Quarter: 2006Q4

REPORT INFORMATION
  Report Type: 
  Country: None (occurrence: None)
  Receive Date: 20061204
  Receipt Date: 20061013
  Transmission Date: 20070319
  Serious: Yes (Other)
  Sender: FDA-Public Use
  Company Number: US-BRISTOL-MYERS SQUIBB COMPANY-13540703

PATIENT

DRUGS (1)
  1. KENALOG [Suspect]
     Route: 031

REACTIONS (2)
  - BLINDNESS TRANSIENT [None]
  - ENDOPHTHALMITIS [None]
